FAERS Safety Report 14992715 (Version 5)
Quarter: 2019Q3

REPORT INFORMATION
  Report Type: Spontaneous
  Country: US (occurrence: US)
  Receive Date: 20180609
  Receipt Date: 20190726
  Transmission Date: 20191004
  Serious: No
  Sender: FDA-Public Use
  Company Number: US-JNJFOC-20180534188

PATIENT
  Sex: Male

DRUGS (3)
  1. LEXAPRO [Concomitant]
     Active Substance: ESCITALOPRAM OXALATE
     Route: 065
  2. ZYTIGA [Suspect]
     Active Substance: ABIRATERONE ACETATE
     Indication: PRODUCT USED FOR UNKNOWN INDICATION
     Dosage: 500MG
     Route: 048
  3. ZYTIGA [Suspect]
     Active Substance: ABIRATERONE ACETATE
     Route: 048

REACTIONS (9)
  - Pain in extremity [Unknown]
  - Product prescribing error [Unknown]
  - Personality change [Unknown]
  - Weight decreased [Unknown]
  - Blood potassium decreased [Not Recovered/Not Resolved]
  - Vitamin D deficiency [Unknown]
  - Body height decreased [Unknown]
  - Decreased appetite [Unknown]
  - Blood thyroid stimulating hormone increased [Unknown]
